FAERS Safety Report 10794623 (Version 1)
Quarter: 2015Q1

REPORT INFORMATION
  Report Type: Spontaneous
  Country: AU (occurrence: AU)
  Receive Date: 20150213
  Receipt Date: 20150213
  Transmission Date: 20150721
  Serious: Yes (Other)
  Sender: FDA-Public Use
  Company Number: AU-BAXTER-2015BAX007711

PATIENT
  Age: 21 Year
  Sex: Male

DRUGS (8)
  1. IRINOTECAN [Suspect]
     Active Substance: IRINOTECAN
     Indication: DESMOPLASTIC SMALL ROUND CELL TUMOUR
     Route: 065
  2. CISPLATIN. [Suspect]
     Active Substance: CISPLATIN
     Indication: DESMOPLASTIC SMALL ROUND CELL TUMOUR
     Route: 065
  3. TEMOZOLOMIDE. [Suspect]
     Active Substance: TEMOZOLOMIDE
     Indication: DESMOPLASTIC SMALL ROUND CELL TUMOUR
     Route: 065
  4. ETOPOSIDE. [Suspect]
     Active Substance: ETOPOSIDE
     Indication: DESMOPLASTIC SMALL ROUND CELL TUMOUR
     Route: 065
  5. ENDOXAN CYCLOPHOSPHAMIDE 2G (AS MONOHYDRATE) POWDER FOR INJECTION VIAL [Suspect]
     Active Substance: CYCLOPHOSPHAMIDE
     Indication: OFF LABEL USE
  6. DOXORUBICIN [Suspect]
     Active Substance: DOXORUBICIN
     Indication: DESMOPLASTIC SMALL ROUND CELL TUMOUR
     Route: 065
  7. VINCRISTINE [Suspect]
     Active Substance: VINCRISTINE
     Indication: DESMOPLASTIC SMALL ROUND CELL TUMOUR
     Route: 065
  8. ENDOXAN CYCLOPHOSPHAMIDE 2G (AS MONOHYDRATE) POWDER FOR INJECTION VIAL [Suspect]
     Active Substance: CYCLOPHOSPHAMIDE
     Indication: DESMOPLASTIC SMALL ROUND CELL TUMOUR
     Route: 065

REACTIONS (5)
  - Desmoplastic small round cell tumour [Unknown]
  - Metastases to lymph nodes [Unknown]
  - Neoplasm recurrence [Unknown]
  - Intestinal obstruction [Unknown]
  - Metastases to pelvis [Unknown]
